FAERS Safety Report 4365954-0 (Version None)
Quarter: 2004Q2

REPORT INFORMATION
  Report Type: 
  Country: None (occurrence: None)
  Receive Date: 20040520
  Receipt Date: 20040518
  Transmission Date: 20050107
  Serious: Yes (Hospitalization)
  Sender: FDA-Public Use
  Company Number: DEU-2004-0000831

PATIENT
  Age: 73 Year
  Sex: Male
  Weight: 88 kg

DRUGS (15)
  1. OXYCODONE HCL [Suspect]
     Dosage: 80 MG, BID, ORAL
     Route: 048
     Dates: start: 20030101
  2. ACETYLSALICYLIC ACID SRT [Suspect]
     Indication: CORONARY ARTERY DISEASE
     Dosage: 100 MG, DAILY, ORAL
     Route: 048
     Dates: end: 20040204
  3. METOPROLOL SUCCINATE [Suspect]
     Indication: HYPERTENSION
     Dosage: 95 MG, BID, ORAL
     Route: 048
  4. INSULIN [Concomitant]
  5. ALNA (TAMSULOSIN HYDROCHLORIDE) [Concomitant]
  6. ANTRA MUPS (OMEPRAZOLE MAGNESIUM) [Concomitant]
  7. FINLEPSIN - SLOW RELEASE (CARBAMAZEPNE) [Concomitant]
  8. ISCOVER (CLOPIDOGREL SULFATE) [Concomitant]
  9. ISOKET (ISOSORBIDE DINITRATE) [Concomitant]
  10. KREON (PANCREATIN) [Concomitant]
  11. LORZAAR PLUS (HYDROCHLOROTHIAZIDE, LOSARTAN POTASSIUM) [Concomitant]
  12. MILGAMMA (BENFOTIAMINE, CYANOCOBALAMIN) [Concomitant]
  13. PROTAPHANE MC (INSULIN INJECTION, ISOPHANE) [Concomitant]
  14. ATORVASTATIN (ATORVASTATIN) [Concomitant]
  15. TROMLIPON (THIOCTIC ACID) [Concomitant]

REACTIONS (3)
  - DRUG INTERACTION [None]
  - HELICOBACTER GASTRITIS [None]
  - VOMITING [None]
